FAERS Safety Report 5264818-8 (Version None)
Quarter: 2007Q1

REPORT INFORMATION
  Report Type: 
  Country: None (occurrence: None)
  Receive Date: 20070314
  Receipt Date: 20070309
  Transmission Date: 20070707
  Serious: Yes (Hospitalization)
  Sender: FDA-Public Use
  Company Number: US-GLAXOSMITHKLINE-A0642592A

PATIENT
  Age: 71 Year
  Sex: Female

DRUGS (11)
  1. ADVAIR DISKUS 100/50 [Suspect]
     Indication: ASTHMA
     Dosage: 1PUFF VARIABLE DOSE
     Route: 055
     Dates: start: 20020101
  2. ALLERGY SHOTS [Concomitant]
  3. PRILOSEC [Concomitant]
  4. COUMADIN [Concomitant]
  5. CIPRO [Concomitant]
  6. ALPHAGAN P [Concomitant]
  7. MURO EYE OINTMENT [Concomitant]
  8. MURO EYE DROPS [Concomitant]
  9. PRED FORTE EYE DROPS [Concomitant]
  10. ACTONEL [Concomitant]
  11. CALCIUM + VITAMIN D [Concomitant]

REACTIONS (6)
  - CATARACT [None]
  - DRUG INEFFECTIVE [None]
  - GLAUCOMA [None]
  - OSTEOPOROSIS [None]
  - THROMBOSIS [None]
  - URINARY TRACT INFECTION [None]
